FAERS Safety Report 6504513-8 (Version None)
Quarter: 2009Q4

REPORT INFORMATION
  Report Type: 
  Country: None (occurrence: None)
  Receive Date: 20091215
  Receipt Date: 20091204
  Transmission Date: 20100525
  Serious: Yes (Hospitalization)
  Sender: FDA-Public Use
  Company Number: 2009AC000414

PATIENT
  Age: 84 Year
  Sex: Female

DRUGS (25)
  1. DIGOXIN [Suspect]
     Dosage: UNKNOWN; UNK; PO
     Route: 048
     Dates: start: 20070101
  2. ASPIRIN [Concomitant]
  3. BONIVA [Concomitant]
  4. CARDIZEM [Concomitant]
  5. CENTRUM MULTIPLE [Concomitant]
  6. VITAMINS WITH MINERALS [Concomitant]
  7. ENALAPRIL MALEATE [Concomitant]
  8. GLIPIZIDE [Concomitant]
  9. LASIX [Concomitant]
  10. METAMUCIL [Concomitant]
  11. METOPROLOL TARTRATE [Concomitant]
  12. POTASSIUM CHLORIDE [Concomitant]
  13. PREVACID [Concomitant]
  14. SYNTHROID [Concomitant]
  15. WARFARIN [Concomitant]
  16. K-DUR [Concomitant]
  17. XOPENX [Concomitant]
  18. * CALCIUM MAGNESIUM [Concomitant]
  19. OMEPRAZOLE [Concomitant]
  20. LEVOXYL [Concomitant]
  21. DILTIAZEM [Concomitant]
  22. GLIPIZIDE [Concomitant]
  23. KLOR-CON [Concomitant]
  24. LOVAZA [Concomitant]
  25. AZITHROMYCIN [Concomitant]

REACTIONS (26)
  - ABASIA [None]
  - ARTERIOSCLEROSIS CORONARY ARTERY [None]
  - ATRIAL FIBRILLATION [None]
  - CARDIAC FAILURE CONGESTIVE [None]
  - CARDIAC VALVE DISEASE [None]
  - CATARACT [None]
  - CONFUSIONAL STATE [None]
  - CORONARY ARTERY DISEASE [None]
  - DEMENTIA [None]
  - DYSPNOEA [None]
  - ECONOMIC PROBLEM [None]
  - GASTROOESOPHAGEAL REFLUX DISEASE [None]
  - HYPERTENSION [None]
  - HYPOTHYROIDISM [None]
  - MENTAL STATUS CHANGES [None]
  - MITRAL VALVE INCOMPETENCE [None]
  - MULTIPLE INJURIES [None]
  - MUSCULOSKELETAL PAIN [None]
  - OSTEOARTHRITIS [None]
  - PULMONARY HYPERTENSION [None]
  - ROTATOR CUFF SYNDROME [None]
  - SURGERY [None]
  - THERAPEUTIC AGENT TOXICITY [None]
  - TRANSIENT ISCHAEMIC ATTACK [None]
  - UNEVALUABLE EVENT [None]
  - UPPER RESPIRATORY TRACT INFECTION [None]
